FAERS Safety Report 12884802 (Version 2)
Quarter: 2017Q2

REPORT INFORMATION
  Report Type: Spontaneous
  Country: US (occurrence: US)
  Receive Date: 20161026
  Receipt Date: 20170404
  Transmission Date: 20170830
  Serious: No
  Sender: FDA-Public Use
  Company Number: US-TEVA-699416ACC

PATIENT
  Age: 20 Year
  Sex: Female
  Weight: 59.02 kg

DRUGS (1)
  1. PARAGARD T 380A [Suspect]
     Active Substance: COPPER
     Indication: CONTRACEPTION
     Dates: start: 20160920, end: 20160922

REACTIONS (3)
  - Device expulsion [Recovered/Resolved]
  - Pelvic pain [Unknown]
  - Discomfort [Unknown]

NARRATIVE: CASE EVENT DATE: 20160920
